FAERS Safety Report 8390570-3 (Version None)
Quarter: 2012Q2

REPORT INFORMATION
  Report Type: 
  Country: None (occurrence: None)
  Receive Date: 20120517
  Receipt Date: 20120509
  Transmission Date: 20120825
  Serious: Yes (Other)
  Sender: FDA-Public Use
  Company Number: 2012SP024906

PATIENT
  Age: 0 Year
  Sex: Female

DRUGS (2)
  1. NASONEX [Suspect]
     Indication: PRODUCT USED FOR UNKNOWN INDICATION
     Dosage: TRPL
     Route: 064
     Dates: start: 20110922
  2. MAGNE B6 (DYNAMAG) [Suspect]
     Indication: PRODUCT USED FOR UNKNOWN INDICATION
     Dosage: TRPL
     Route: 064
     Dates: start: 20110922

REACTIONS (2)
  - MATERNAL DRUGS AFFECTING FOETUS [None]
  - FOETAL GROWTH RESTRICTION [None]
